FAERS Safety Report 7574411-X (Version None)
Quarter: 2011Q2

REPORT INFORMATION
  Report Type: 
  Country: None (occurrence: None)
  Receive Date: 20110627
  Receipt Date: 20110509
  Transmission Date: 20111010
  Serious: No
  Sender: FDA-Public Use
  Company Number: US-BAYER-2011-041413

PATIENT
  Age: 81 Year
  Sex: Male
  Weight: 91 kg

DRUGS (3)
  1. CILOSTAZOL [Concomitant]
  2. ALEVE (CAPLET) [Suspect]
     Indication: ARTHRALGIA
     Dosage: 220 MG, ONCE
     Route: 048
     Dates: start: 20100101
  3. INSULIN [Concomitant]

REACTIONS (1)
  - NO ADVERSE EVENT [None]
